FAERS Safety Report 6423801-7 (Version None)
Quarter: 2009Q4

REPORT INFORMATION
  Report Type: 
  Country: None (occurrence: None)
  Receive Date: 20091102
  Receipt Date: 20091026
  Transmission Date: 20100525
  Serious: Yes (Life-Threatening, Hospitalization)
  Sender: FDA-Public Use
  Company Number: GB-ASTRAZENECA-2009SE21249

PATIENT
  Age: 45 Year
  Sex: Female

DRUGS (7)
  1. SEROQUEL [Suspect]
     Indication: AGGRESSION
     Route: 048
     Dates: start: 20090701
  2. SEROQUEL [Suspect]
     Route: 048
  3. SEROQUEL [Suspect]
     Route: 048
     Dates: end: 20091001
  4. EPILIM [Concomitant]
     Indication: EPILEPSY
  5. EPILIM [Concomitant]
     Indication: CONVULSION
  6. CARBEMEZAPINE [Concomitant]
     Indication: EPILEPSY
  7. CITALOPRAM [Concomitant]
     Indication: ANXIETY

REACTIONS (2)
  - COMA [None]
  - HYPERGLYCAEMIA [None]
